FAERS Safety Report 14671892 (Version 2)
Quarter: 2018Q1

REPORT INFORMATION
  Report Type: Report from Study
  Country: TW (occurrence: TW)
  Receive Date: 20180323
  Receipt Date: 20180329
  Transmission Date: 20180509
  Serious: Yes (Death, Life-Threatening, Hospitalization, Other)
  Sender: FDA-Public Use
  Company Number: TW-INCYTE CORPORATION-2017IN008324

PATIENT

DRUGS (1)
  1. JAKAVI [Suspect]
     Active Substance: RUXOLITINIB
     Indication: MYELOFIBROSIS
     Dosage: 10 MG, BID
     Route: 048
     Dates: start: 20170106, end: 20171229

REACTIONS (42)
  - Alanine aminotransferase increased [Unknown]
  - Apnoea [Unknown]
  - Diarrhoea [Unknown]
  - Candida infection [Recovered/Resolved]
  - Pulmonary oedema [Unknown]
  - Haemothorax [Unknown]
  - Dyspnoea [Unknown]
  - Asthenia [Unknown]
  - Hypokalaemia [Recovered/Resolved]
  - Decreased appetite [Unknown]
  - Respiratory distress [Unknown]
  - Enterococcal infection [Not Recovered/Not Resolved]
  - Anuria [Unknown]
  - Lung infiltration [Unknown]
  - Facial pain [Recovered/Resolved]
  - Hyponatraemia [Unknown]
  - Haematemesis [Unknown]
  - Palpitations [Unknown]
  - Death [Fatal]
  - Breath odour [Unknown]
  - Generalised oedema [Unknown]
  - Oxygen saturation decreased [Unknown]
  - Swelling [Recovered/Resolved]
  - Acute kidney injury [Unknown]
  - Atrial fibrillation [Not Recovered/Not Resolved]
  - C-reactive protein increased [Unknown]
  - Osteoradionecrosis [Recovered/Resolved]
  - Osteonecrosis of jaw [Recovered/Resolved]
  - Pleural effusion [Unknown]
  - Sepsis [Unknown]
  - Cough [Unknown]
  - Leukocytosis [Unknown]
  - Oliguria [Unknown]
  - Feeling abnormal [Unknown]
  - Abscess [Unknown]
  - Cerebrovascular accident [Not Recovered/Not Resolved]
  - Anaemia [Unknown]
  - Respiratory failure [Not Recovered/Not Resolved]
  - Pulseless electrical activity [Unknown]
  - Pyrexia [Unknown]
  - Pneumonia [Not Recovered/Not Resolved]
  - Gastrointestinal haemorrhage [Unknown]

NARRATIVE: CASE EVENT DATE: 20170912
